FAERS Safety Report 15075215 (Version 1)
Quarter: 2018Q2

REPORT INFORMATION
  Report Type: Spontaneous
  Country: US (occurrence: US)
  Receive Date: 20180627
  Receipt Date: 20180627
  Transmission Date: 20180711
  Serious: Yes (Other)
  Sender: FDA-Public Use
  Company Number: US-SAOL THERAPEUTICS-2018SAO00099

PATIENT
  Age: 45 Year
  Sex: Female
  Weight: 80.23 kg

DRUGS (1)
  1. BACLOFEN. [Suspect]
     Active Substance: BACLOFEN
     Indication: MUSCLE SPASTICITY
     Route: 037

REACTIONS (10)
  - Loss of consciousness [Recovered/Resolved]
  - Dizziness [Recovered/Resolved]
  - Muscle spasticity [Recovered/Resolved]
  - Dysstasia [Recovered/Resolved]
  - Overdose [Recovered/Resolved]
  - Musculoskeletal stiffness [Recovered/Resolved]
  - Speech disorder [Recovered/Resolved]
  - Sensory disturbance [Recovered/Resolved]
  - Gait inability [Recovered/Resolved]
  - Drug dispensing error [Recovered/Resolved]

NARRATIVE: CASE EVENT DATE: 2016
